FAERS Safety Report 5597117-5 (Version None)
Quarter: 2008Q1

REPORT INFORMATION
  Report Type: 
  Country: None (occurrence: None)
  Receive Date: 20080121
  Receipt Date: 20080118
  Transmission Date: 20080703
  Serious: Yes (Life-Threatening, Hospitalization)
  Sender: FDA-Public Use
  Company Number: PHNU2007DE04281

PATIENT
  Age: 65 Year
  Sex: Male

DRUGS (13)
  1. NORVASC [Concomitant]
  2. TOREM [Concomitant]
  3. RAMIPRIL [Concomitant]
  4. CARMEN [Concomitant]
  5. CANDESARTAN CILEXETIL [Concomitant]
  6. DILTIAZEM [Concomitant]
  7. INSPRA [Concomitant]
  8. ASPIRIN [Concomitant]
  9. PRAVASTATIN SODIUM [Concomitant]
  10. THIOCTACID [Concomitant]
  11. SUSTIVA [Concomitant]
  12. KIVEXA [Concomitant]
  13. RASILEZ [Suspect]
     Indication: HYPERTENSIVE CRISIS
     Dosage: 75 MG/DAY
     Route: 048
     Dates: end: 20071207

REACTIONS (10)
  - BLOOD CREATININE INCREASED [None]
  - BLOOD UREA INCREASED [None]
  - BRADYCARDIA [None]
  - DEHYDRATION [None]
  - DIALYSIS [None]
  - ENDOTRACHEAL INTUBATION [None]
  - HYPOTENSION [None]
  - PNEUMONIA [None]
  - RENAL FAILURE ACUTE [None]
  - RESUSCITATION [None]
